FAERS Safety Report 14030420 (Version 1)
Quarter: 2017Q4

REPORT INFORMATION
  Report Type: Spontaneous
  Country: GR (occurrence: GR)
  Receive Date: 20171002
  Receipt Date: 20171002
  Transmission Date: 20180321
  Serious: Yes (Other)
  Sender: FDA-Public Use
  Company Number: PHHY2015GR108425

PATIENT
  Age: 60 Year
  Sex: Female

DRUGS (2)
  1. VOLTAREN [Suspect]
     Active Substance: DICLOFENAC SODIUM
     Indication: BACK PAIN
     Dosage: 75 MG, BID
     Route: 030
     Dates: start: 20150904, end: 20150904
  2. VOLTAREN [Suspect]
     Active Substance: DICLOFENAC SODIUM
     Indication: SCIATICA
     Dosage: 2 DF, UNK (2 INJECTIONS)
     Route: 065
     Dates: start: 20150903, end: 20150903

REACTIONS (3)
  - Odynophagia [Recovering/Resolving]
  - Oral fungal infection [Recovered/Resolved]
  - Stomatitis [Recovering/Resolving]

NARRATIVE: CASE EVENT DATE: 20150904
